FAERS Safety Report 11822297 (Version 3)
Quarter: 2017Q2

REPORT INFORMATION
  Report Type: Spontaneous
  Country: US (occurrence: US)
  Receive Date: 20151210
  Receipt Date: 20170523
  Transmission Date: 20170829
  Serious: No
  Sender: FDA-Public Use
  Company Number: US-JNJFOC-20150813974

PATIENT
  Age: 67 Year
  Sex: Female

DRUGS (14)
  1. LORATADINE. [Concomitant]
     Active Substance: LORATADINE
  2. ERGOCALCIFEROL. [Concomitant]
     Active Substance: ERGOCALCIFEROL
  3. IMBRUVICA [Suspect]
     Active Substance: IBRUTINIB
     Indication: LYMPHOMA
     Route: 048
     Dates: start: 20150714
  4. ACYCLOVIR. [Concomitant]
     Active Substance: ACYCLOVIR
  5. DEXAMETHASONE. [Concomitant]
     Active Substance: DEXAMETHASONE
  6. IXAZOMIB [Concomitant]
     Active Substance: IXAZOMIB
  7. IMBRUVICA [Suspect]
     Active Substance: IBRUTINIB
     Indication: LYMPHOMA
     Route: 048
     Dates: start: 2015
  8. TIKOSYN [Concomitant]
     Active Substance: DOFETILIDE
  9. IMBRUVICA [Suspect]
     Active Substance: IBRUTINIB
     Indication: LYMPHOPLASMACYTOID LYMPHOMA/IMMUNOCYTOMA
     Route: 048
     Dates: start: 20150714
  10. IMBRUVICA [Suspect]
     Active Substance: IBRUTINIB
     Indication: LYMPHOPLASMACYTOID LYMPHOMA/IMMUNOCYTOMA
     Route: 048
     Dates: start: 2015
  11. PROPAFENONE. [Concomitant]
     Active Substance: PROPAFENONE
  12. SYNTHROID [Concomitant]
     Active Substance: LEVOTHYROXINE SODIUM
  13. XARELTO [Concomitant]
     Active Substance: RIVAROXABAN
  14. RITUXAN [Concomitant]
     Active Substance: RITUXIMAB

REACTIONS (10)
  - Febrile neutropenia [Unknown]
  - White blood cell count decreased [Unknown]
  - Constipation [Not Recovered/Not Resolved]
  - Diarrhoea [Recovered/Resolved]
  - Alopecia [Unknown]
  - Haemorrhoids [Unknown]
  - Haemoglobin decreased [Unknown]
  - Off label use [Unknown]
  - Sleep disorder [Not Recovered/Not Resolved]
  - Anaemia [Unknown]

NARRATIVE: CASE EVENT DATE: 2015
